FAERS Safety Report 10450392 (Version 2)
Quarter: 2014Q3

REPORT INFORMATION
  Report Type: Spontaneous
  Country: US (occurrence: US)
  Receive Date: 20140912
  Receipt Date: 20140926
  Transmission Date: 20150326
  Serious: Yes (Other)
  Sender: FDA-Public Use
  Company Number: US-JNJFOC-20140907502

PATIENT
  Age: 24 Year
  Sex: Male

DRUGS (3)
  1. HUMIRA [Suspect]
     Active Substance: ADALIMUMAB
     Indication: PSORIASIS
     Route: 065
     Dates: start: 20140411
  2. TRAMADOL HYDROCHLORIDE. [Suspect]
     Active Substance: TRAMADOL HYDROCHLORIDE
     Indication: PAIN
     Dosage: 50 MG, 2 TABLET THRICE A DAY
     Route: 065
     Dates: end: 201405
  3. HUMIRA [Suspect]
     Active Substance: ADALIMUMAB
     Indication: PSORIATIC ARTHROPATHY
     Route: 065
     Dates: start: 20140411

REACTIONS (16)
  - Eye pain [Unknown]
  - Gait disturbance [Unknown]
  - Nausea [Unknown]
  - Pain in jaw [Unknown]
  - Chest pain [Unknown]
  - Dyspnoea [Recovered/Resolved]
  - Spinal pain [Unknown]
  - Neck pain [Unknown]
  - Musculoskeletal pain [Unknown]
  - Mobility decreased [Unknown]
  - Headache [Unknown]
  - Pain in extremity [Unknown]
  - Ear pain [Unknown]
  - Productive cough [Unknown]
  - Drug effect incomplete [Unknown]
  - Arthralgia [Unknown]

NARRATIVE: CASE EVENT DATE: 2014
